FAERS Safety Report 9002596 (Version 2)
Quarter: 2013Q1

REPORT INFORMATION
  Report Type: Spontaneous
  Country: US (occurrence: US)
  Receive Date: 20130107
  Receipt Date: 20130109
  Transmission Date: 20140127
  Serious: Yes (Hospitalization)
  Sender: FDA-Public Use
  Company Number: US-PFIZER INC-2013003204

PATIENT
  Age: 42 Year
  Sex: Female
  Weight: 58.05 kg

DRUGS (6)
  1. LYRICA [Suspect]
     Indication: MULTIPLE SCLEROSIS
     Dosage: 100 MG, 2X/DAY
     Dates: start: 2008
  2. LYRICA [Suspect]
     Dosage: 200 MG, 4X/DAY
  3. SINGULAIR [Concomitant]
     Indication: ASTHMA
     Dosage: 10 MG, DAILY
  4. CRESTOR [Concomitant]
     Indication: BLOOD CHOLESTEROL ABNORMAL
     Dosage: 10 MG, DAILY
  5. ZANAFLEX [Concomitant]
     Indication: MUSCLE SPASMS
     Dosage: 8 MG, DAILY
  6. BETASERON [Concomitant]
     Indication: MULTIPLE SCLEROSIS
     Dosage: UNK, EVERY OTHER DAY

REACTIONS (6)
  - Multiple sclerosis [Unknown]
  - Drug ineffective [Unknown]
  - Fatigue [Unknown]
  - Tremor [Unknown]
  - Overdose [Not Recovered/Not Resolved]
  - Off label use [Not Recovered/Not Resolved]
